FAERS Safety Report 5333486-9 (Version None)
Quarter: 2007Q2

REPORT INFORMATION
  Report Type: 
  Country: None (occurrence: None)
  Receive Date: 20070524
  Receipt Date: 20070515
  Transmission Date: 20071010
  Serious: Yes (Other)
  Sender: FDA-Public Use
  Company Number: US-ALLERGAN-0603489US

PATIENT
  Sex: Female
  Weight: 43.991 kg

DRUGS (2)
  1. BOTOX [Suspect]
     Indication: BLEPHAROSPASM
     Dosage: 45 UNITS, SINGLE
     Route: 030
     Dates: start: 20060803, end: 20060803
  2. BOTOX [Suspect]
     Indication: FACIAL SPASM
     Dosage: UNK, SINGLE
     Route: 030
     Dates: start: 20040819, end: 20040819

REACTIONS (2)
  - HEARING IMPAIRED [None]
  - NAUSEA [None]
